FAERS Safety Report 5597149-7 (Version None)
Quarter: 2008Q1

REPORT INFORMATION
  Report Type: 
  Country: None (occurrence: None)
  Receive Date: 20080121
  Receipt Date: 20080107
  Transmission Date: 20080703
  Serious: Yes (Death)
  Sender: FDA-Public Use
  Company Number: US-WYE-H02047108

PATIENT
  Age: 38 Year
  Sex: Female

DRUGS (5)
  1. PROMETHAZINE HCL [Suspect]
     Dosage: OVERDOSE AMOUNT UNKNOWN
     Dates: start: 20060101, end: 20060101
  2. ZOLPIDEM [Suspect]
     Dosage: OVERDOSE AMOUNT UNKNOWN
     Dates: start: 20060101, end: 20060101
  3. SIMVASTATIN [Suspect]
     Dosage: OVERDOSE AMOUNT UNKNOWN
     Dates: start: 20060101, end: 20060101
  4. FENTANYL [Suspect]
     Dosage: OVERDOSE AMOUNT UNKNOWN
     Dates: start: 20060101, end: 20060101
  5. METAXALONE [Suspect]
     Dosage: OVERDOSE AMOUNT UNKNOWN
     Dates: start: 20060101, end: 20060101

REACTIONS (2)
  - DRUG ABUSE [None]
  - INTENTIONAL OVERDOSE [None]
